FAERS Safety Report 23946543 (Version 1)
Quarter: 2024Q2

REPORT INFORMATION
  Report Type: Spontaneous
  Country: JP (occurrence: None)
  Receive Date: 20240606
  Receipt Date: 20240606
  Transmission Date: 20240716
  Serious: Yes (Death)
  Sender: FDA-Public Use
  Company Number: 2024A130167

PATIENT
  Age: 80 Year

DRUGS (4)
  1. EVUSHELD [Suspect]
     Active Substance: CILGAVIMAB\TIXAGEVIMAB
     Indication: COVID-19 prophylaxis
     Dosage: DOSE UNKNOWN
     Route: 030
  2. VENCLEXTA [Concomitant]
     Active Substance: VENETOCLAX
     Indication: Plasmacytoma
     Dosage: DOSE UNKNOWN
  3. CYTARABINE [Concomitant]
     Active Substance: CYTARABINE
     Indication: Plasmacytoma
     Dosage: DOSE UNKNOWN
  4. REMITORO [Concomitant]
     Dosage: DOSE UNKNOWN, ADMINISTERED FOR 10 COURSES
     Route: 041

REACTIONS (1)
  - Death [Fatal]
